FAERS Safety Report 4399925-5 (Version None)
Quarter: 2004Q3

REPORT INFORMATION
  Report Type: 
  Country: None (occurrence: None)
  Receive Date: 20040714
  Receipt Date: 20040616
  Transmission Date: 20050211
  Serious: Yes (Death)
  Sender: FDA-Public Use
  Company Number: 8280

PATIENT
  Age: 59 Year
  Sex: Female

DRUGS (5)
  1. METHOTREXATE [Suspect]
     Indication: CENTRAL NERVOUS SYSTEM LYMPHOMA
     Dosage: 3.8 G PER_CYCLE IV
     Route: 042
     Dates: start: 20040529, end: 20040529
  2. FILGRASTIM [Concomitant]
  3. EXACIN [Concomitant]
  4. SULPERAZON [Concomitant]
  5. IMMUNE GLOBULIN INTRAVENOUS (HUMAN) [Concomitant]

REACTIONS (3)
  - CHEMOTHERAPEUTIC DRUG LEVEL INCREASED [None]
  - DIARRHOEA [None]
  - PLATELET COUNT DECREASED [None]
